FAERS Safety Report 22535673 (Version 2)
Quarter: 2024Q3

REPORT INFORMATION
  Report Type: Spontaneous
  Country: US (occurrence: US)
  Receive Date: 20230608
  Receipt Date: 20240704
  Transmission Date: 20241016
  Serious: No
  Sender: SANOFI AVENTIS
  Company Number: US-SA-SAC20230602001271

PATIENT
  Sex: Female
  Weight: 97 kg

DRUGS (1)
  1. DUPIXENT [Suspect]
     Active Substance: DUPILUMAB
     Indication: Dermatitis atopic
     Dosage: 300 MG, QOW
     Route: 058

REACTIONS (5)
  - Dermatitis atopic [Unknown]
  - Dry skin [Unknown]
  - Skin exfoliation [Unknown]
  - Rash [Unknown]
  - Product dose omission issue [Unknown]
